FAERS Safety Report 10383606 (Version 7)
Quarter: 2014Q4

REPORT INFORMATION
  Report Type: Report from Study
  Country: US (occurrence: US)
  Receive Date: 20140814
  Receipt Date: 20141223
  Transmission Date: 20150528
  Serious: Yes (Hospitalization)
  Sender: FDA-Public Use
  Company Number: US-009507513-1406USA009454

PATIENT
  Age: 65 Year
  Sex: Male
  Weight: 71.3 kg

DRUGS (19)
  1. VORINOSTAT [Suspect]
     Active Substance: VORINOSTAT
     Indication: GLIOBLASTOMA
     Dosage: 400 MG, QD, TAKEN DAYS 1-7 AND 15-21 OF 28 DAY CYCLE
     Route: 048
     Dates: start: 20140521
  2. DECADRON [Suspect]
     Active Substance: DEXAMETHASONE
     Dosage: TAPERED OFF
     Dates: start: 201406
  3. OLOPATADINE HYDROCHLORIDE. [Concomitant]
     Active Substance: OLOPATADINE HYDROCHLORIDE
     Dosage: 0.2 %, QD
  4. KEPPRA [Concomitant]
     Active Substance: LEVETIRACETAM
     Dosage: 500 MG, BID
  5. VORINOSTAT [Suspect]
     Active Substance: VORINOSTAT
     Dosage: 300 MG, QD, TAKEN DAYS 1-7 AND 15-21 OF 28 DAY CYCLE
     Route: 048
     Dates: start: 20141007, end: 20141013
  6. DECADRON [Suspect]
     Active Substance: DEXAMETHASONE
     Dosage: 8 MG, BID
     Route: 048
  7. AVASTIN [Suspect]
     Active Substance: BEVACIZUMAB
     Dosage: 10 MG/KG, QOW
     Dates: start: 20141007
  8. DOCUSATE SODIUM. [Concomitant]
     Active Substance: DOCUSATE SODIUM
     Dosage: 100 MG, QD
  9. SERTRALINE HYDROCHLORIDE. [Concomitant]
     Active Substance: SERTRALINE HYDROCHLORIDE
     Dosage: 25 MG, QD
  10. VORINOSTAT [Suspect]
     Active Substance: VORINOSTAT
     Dosage: 400 MG, QD, TAKEN DAYS 1-7 AND 15-21 OF 28 DAY CYCLE
     Route: 048
     Dates: start: 20140729, end: 20140731
  11. AZELASTINE HYDROCHLORIDE. [Concomitant]
     Active Substance: AZELASTINE HYDROCHLORIDE
     Dosage: 137 MICROGRAM, BID
     Route: 045
  12. RITALIN [Concomitant]
     Active Substance: METHYLPHENIDATE HYDROCHLORIDE
     Dosage: 5 MG, BID
  13. AVASTIN [Suspect]
     Active Substance: BEVACIZUMAB
     Indication: GLIOBLASTOMA
     Dosage: 10 MG/KG, QOW
     Dates: start: 20140521
  14. AVASTIN [Suspect]
     Active Substance: BEVACIZUMAB
     Dosage: 10 MG/KG, QOW
     Dates: start: 20140728
  15. AZOPT [Concomitant]
     Active Substance: BRINZOLAMIDE
     Dosage: 1 %, BID
  16. LEVETIRACETAM. [Concomitant]
     Active Substance: LEVETIRACETAM
     Dosage: 500 MG, BID
  17. ZOCOR [Concomitant]
     Active Substance: SIMVASTATIN
     Dosage: 10 MG, QD
  18. PEPCID [Concomitant]
     Active Substance: FAMOTIDINE
     Dosage: 40 MG, QD
  19. BRIMONIDINE TARTRATE. [Concomitant]
     Active Substance: BRIMONIDINE TARTRATE
     Dosage: 0.15 %, BID

REACTIONS (4)
  - Fatigue [Unknown]
  - Asthenia [Unknown]
  - Partial seizures [Unknown]
  - Pyrexia [Unknown]

NARRATIVE: CASE EVENT DATE: 20140615
